FAERS Safety Report 14205823 (Version 3)
Quarter: 2019Q3

REPORT INFORMATION
  Report Type: Spontaneous
  Country: JP (occurrence: JP)
  Receive Date: 20171120
  Receipt Date: 20190813
  Transmission Date: 20191004
  Serious: Yes (Death)
  Sender: FDA-Public Use
  Company Number: JP-MALLINCKRODT-T201704537

PATIENT
  Age: 44 Year
  Sex: Male
  Weight: 99 kg

DRUGS (64)
  1. ZOSYN [Concomitant]
     Active Substance: PIPERACILLIN SODIUM\TAZOBACTAM SODIUM
     Indication: PRODUCT USED FOR UNKNOWN INDICATION
     Dosage: 13.5 GRAM
     Route: 051
     Dates: start: 20150617, end: 20150626
  2. SOLANAX [Concomitant]
     Active Substance: ALPRAZOLAM
     Indication: PRODUCT USED FOR UNKNOWN INDICATION
     Dosage: 0.8 MILLIGRAM
     Route: 048
     Dates: start: 20150803, end: 20151005
  3. MORPHINE HYDROCHLORIDE TRIHYDRATE [Concomitant]
     Active Substance: MORPHINE HYDROCHLORIDE
     Indication: ANALGESIC THERAPY
     Dosage: 2.5 MILLIGRAM
     Route: 008
     Dates: start: 20150813, end: 20150819
  4. MORPHINE HYDROCHLORIDE TRIHYDRATE [Concomitant]
     Active Substance: MORPHINE HYDROCHLORIDE
     Dosage: 36 MILLIGRAM
     Route: 029
     Dates: start: 20150819, end: 20150820
  5. LOXOPROFEN [Concomitant]
     Active Substance: LOXOPROFEN
     Indication: ANALGESIC THERAPY
     Dosage: 120 MILLIGRAM
     Route: 048
     Dates: start: 20140108, end: 20150710
  6. OXIFAST [Concomitant]
     Active Substance: OXYCODONE
     Indication: ANALGESIC THERAPY
     Dosage: 192 MILLIGRAM
     Route: 051
     Dates: start: 20150708, end: 20150713
  7. MORPHINE HYDROCHLORIDE TRIHYDRATE [Concomitant]
     Active Substance: MORPHINE HYDROCHLORIDE
     Dosage: 400 MILLIGRAM
     Route: 029
     Dates: start: 20150928, end: 20151006
  8. MAXIPIME [Concomitant]
     Active Substance: CEFEPIME HYDROCHLORIDE
     Dosage: 2 GRAM
     Route: 051
     Dates: start: 20150923, end: 20151002
  9. METHADONE [Suspect]
     Active Substance: METHADONE HYDROCHLORIDE
     Indication: CANCER PAIN
     Dosage: 10 MG,
     Route: 048
     Dates: start: 20150617, end: 20150623
  10. METHADONE [Suspect]
     Active Substance: METHADONE HYDROCHLORIDE
     Dosage: 20 MG,
     Route: 048
     Dates: start: 20150803, end: 20150821
  11. MEXITIL [Concomitant]
     Active Substance: MEXILETINE HYDROCHLORIDE
     Indication: ANALGESIC THERAPY
     Dosage: 300 MILLIGRAM
     Route: 048
     Dates: end: 20150710
  12. CYMBALTA [Concomitant]
     Active Substance: DULOXETINE HYDROCHLORIDE
     Indication: ANALGESIC THERAPY
     Dosage: 40 MILLIGRAM
     Route: 048
     Dates: start: 20130828, end: 20150710
  13. ROHYPNOL [Concomitant]
     Active Substance: FLUNITRAZEPAM
     Dosage: 3 MILLIGRAM
     Route: 048
     Dates: start: 20150727, end: 20150816
  14. ROHYPNOL [Concomitant]
     Active Substance: FLUNITRAZEPAM
     Dosage: 4 MILLIGRAM
     Route: 048
     Dates: start: 20150831, end: 20151005
  15. KETALAR [Concomitant]
     Active Substance: KETAMINE HYDROCHLORIDE
     Dosage: 400 MILLIGRAM
     Route: 051
     Dates: start: 20150807, end: 20150817
  16. KETALAR [Concomitant]
     Active Substance: KETAMINE HYDROCHLORIDE
     Dosage: 800 MILLIGRAM
     Route: 051
     Dates: start: 20150818, end: 20150903
  17. ELNEOPA NO.1 [Concomitant]
     Active Substance: AMINO ACIDS\DEXTROSE\ELECTROLYTES NOS\MINERALS\VITAMINS
     Indication: PRODUCT USED FOR UNKNOWN INDICATION
     Dosage: 2000 MILLILITER
     Route: 051
     Dates: start: 20150725, end: 20150930
  18. MORPHINE HYDROCHLORIDE TRIHYDRATE [Concomitant]
     Active Substance: MORPHINE HYDROCHLORIDE
     Dosage: 700 MILLIGRAM
     Route: 051
     Dates: start: 20150903, end: 20151006
  19. OXINORM [Concomitant]
     Indication: ANALGESIC THERAPY
     Dosage: 20 MILLIGRAM, PRN
     Route: 048
     Dates: start: 20150611
  20. BFLUID [Concomitant]
     Active Substance: AMINO ACIDS\DEXTROSE\ELECTROLYTES NOS\VITAMINS
     Indication: PRODUCT USED FOR UNKNOWN INDICATION
     Dosage: 500 MILLILITER
     Route: 051
     Dates: start: 20150617, end: 20150622
  21. ZOSYN [Concomitant]
     Active Substance: PIPERACILLIN SODIUM\TAZOBACTAM SODIUM
     Dosage: 6.75 GRAM
     Route: 051
     Dates: start: 20150708, end: 20150719
  22. ROHYPNOL [Concomitant]
     Active Substance: FLUNITRAZEPAM
     Indication: PRODUCT USED FOR UNKNOWN INDICATION
     Dosage: 2 MILLIGRAM
     Route: 048
     Dates: start: 20150723, end: 20150726
  23. ROHYPNOL [Concomitant]
     Active Substance: FLUNITRAZEPAM
     Dosage: 5 MILLIGRAM
     Route: 048
     Dates: start: 20150817, end: 20150830
  24. RISPERDAL [Concomitant]
     Active Substance: RISPERIDONE
     Indication: PRODUCT USED FOR UNKNOWN INDICATION
     Dosage: 1 MILLIGRAM
     Route: 048
     Dates: start: 20150820, end: 20150829
  25. CALCICOL [Concomitant]
     Active Substance: CALCIUM GLUCONATE
     Indication: PRODUCT USED FOR UNKNOWN INDICATION
     Dosage: 5 MILLILITER
     Route: 051
     Dates: start: 20150712, end: 20150713
  26. MORPHINE HYDROCHLORIDE TRIHYDRATE [Concomitant]
     Active Substance: MORPHINE HYDROCHLORIDE
     Dosage: 60 MILLIGRAM
     Route: 029
     Dates: start: 20150820, end: 20150902
  27. ANAPEINE [Concomitant]
     Active Substance: ROPIVACAINE HYDROCHLORIDE
     Indication: ANALGESIC THERAPY
     Dosage: 25 MILLIGRAM
     Route: 008
     Dates: start: 20150813, end: 20150819
  28. METHADONE [Suspect]
     Active Substance: METHADONE HYDROCHLORIDE
     Dosage: 15 MG,
     Route: 048
     Dates: start: 20150624, end: 20150707
  29. GOSHAJINKIGAN [Concomitant]
     Active Substance: HERBALS
     Indication: ANALGESIC THERAPY
     Dosage: 7.5 GRAM
     Route: 048
     Dates: start: 20130814, end: 20150710
  30. LUNESTA [Concomitant]
     Active Substance: ESZOPICLONE
     Indication: PRODUCT USED FOR UNKNOWN INDICATION
     Dosage: 1 MILLIGRAM
     Route: 048
     Dates: start: 20150326, end: 20150710
  31. TRAZENTA [Concomitant]
     Active Substance: LINAGLIPTIN
     Indication: PRODUCT USED FOR UNKNOWN INDICATION
     Dosage: 5 MILLIGRAM
     Route: 048
     Dates: end: 20150710
  32. NEXIUM [Concomitant]
     Active Substance: ESOMEPRAZOLE MAGNESIUM
     Indication: PRODUCT USED FOR UNKNOWN INDICATION
     Dosage: 20 MILLIGRAM
     Route: 048
     Dates: end: 20151005
  33. TRYPTANOL [Concomitant]
     Active Substance: AMITRIPTYLINE
     Indication: ANALGESIC THERAPY
     Dosage: 20 MILLIGRAM
     Route: 048
     Dates: start: 20150815, end: 20150818
  34. RECOMODULIN [Concomitant]
     Active Substance: THROMBOMODULIN ALFA
     Indication: PRODUCT USED FOR UNKNOWN INDICATION
     Dosage: 12800 IU
     Route: 051
     Dates: start: 20150708
  35. KETALAR [Concomitant]
     Active Substance: KETAMINE HYDROCHLORIDE
     Indication: ANALGESIC THERAPY
     Dosage: 100 MILLIGRAM
     Route: 051
     Dates: start: 20150713, end: 20150806
  36. SOLDEM [Concomitant]
     Active Substance: DEXTROSE\POTASSIUM CHLORIDE\SODIUM CHLORIDE\SODIUM LACTATE
     Indication: PRODUCT USED FOR UNKNOWN INDICATION
     Dosage: 1000 MILLILITER
     Route: 051
     Dates: start: 20150821, end: 20150902
  37. SOLDEM [Concomitant]
     Active Substance: DEXTROSE\POTASSIUM CHLORIDE\SODIUM CHLORIDE\SODIUM LACTATE
     Dosage: 1500 MILLILITER
     Route: 051
     Dates: start: 20151001, end: 20151006
  38. METHADONE [Suspect]
     Active Substance: METHADONE HYDROCHLORIDE
     Dosage: 30 MG,
     Route: 048
     Dates: start: 20150822, end: 20151006
  39. S ADCHNON [Concomitant]
     Indication: PRODUCT USED FOR UNKNOWN INDICATION
     Dosage: 90 MILLIGRAM
     Route: 048
     Dates: end: 20150710
  40. ZOSYN [Concomitant]
     Active Substance: PIPERACILLIN SODIUM\TAZOBACTAM SODIUM
     Dosage: 2.25 GRAM
     Dates: start: 20150707, end: 20150707
  41. KETALAR [Concomitant]
     Active Substance: KETAMINE HYDROCHLORIDE
     Dosage: 174 MILLIGRAM
     Dates: start: 20150903, end: 20151001
  42. KETALAR [Concomitant]
     Active Substance: KETAMINE HYDROCHLORIDE
     Dosage: 100 MILLIGRAM
     Route: 051
     Dates: start: 20151001, end: 20151006
  43. MIDAZOLAM [Concomitant]
     Active Substance: MIDAZOLAM HYDROCHLORIDE
     Indication: PRODUCT USED FOR UNKNOWN INDICATION
     Dosage: 10 MILLIGRAM
     Route: 051
     Dates: start: 20150713, end: 20150724
  44. PREPENON [Concomitant]
     Active Substance: MORPHINE HYDROCHLORIDE
     Indication: ANALGESIC THERAPY
     Dosage: 1000 MILLIGRAM
     Route: 051
     Dates: start: 20150807, end: 20150811
  45. MORPHINE HYDROCHLORIDE TRIHYDRATE [Concomitant]
     Active Substance: MORPHINE HYDROCHLORIDE
     Dosage: 2000 MILLIGRAM
     Route: 051
     Dates: start: 20150812, end: 20150903
  46. MAXIPIME [Concomitant]
     Active Substance: CEFEPIME HYDROCHLORIDE
     Indication: PRODUCT USED FOR UNKNOWN INDICATION
     Dosage: 2 GRAM
     Route: 051
     Dates: start: 20150815, end: 20150828
  47. CEFTAZIDIME HYDRATE [Concomitant]
     Active Substance: CEFTAZIDIME
     Indication: PRODUCT USED FOR UNKNOWN INDICATION
     Dosage: 2 GRAM
     Route: 051
     Dates: start: 20150910, end: 20150918
  48. URSODEOXYCHOLIC ACID [Concomitant]
     Active Substance: URSODIOL
     Indication: PRODUCT USED FOR UNKNOWN INDICATION
     Dosage: 300 MILLIGRAM
     Route: 048
     Dates: end: 20150710
  49. LOPERAMIDE [Concomitant]
     Active Substance: LOPERAMIDE
     Indication: PRODUCT USED FOR UNKNOWN INDICATION
     Dosage: 2 MILLIGRAM
     Route: 048
     Dates: end: 20150710
  50. MEYLON [Concomitant]
     Active Substance: SODIUM BICARBONATE
     Indication: PRODUCT USED FOR UNKNOWN INDICATION
     Dosage: 20 MILLILITER
     Route: 051
     Dates: start: 20150707, end: 20150708
  51. MEYLON [Concomitant]
     Active Substance: SODIUM BICARBONATE
     Dosage: 40 MILLILITER
     Route: 051
     Dates: start: 20150709, end: 20150713
  52. OXIFAST [Concomitant]
     Active Substance: OXYCODONE
     Dosage: 288 MILLIGRAM
     Route: 051
     Dates: start: 20150714, end: 20150717
  53. NOVOLIN R [Concomitant]
     Active Substance: INSULIN HUMAN
     Indication: PRODUCT USED FOR UNKNOWN INDICATION
     Dosage: 5  IU
     Route: 051
     Dates: start: 20150709, end: 20150722
  54. FLUMARIN [Concomitant]
     Indication: PRODUCT USED FOR UNKNOWN INDICATION
     Dosage: 1 GRAM
     Route: 051
     Dates: start: 20150720, end: 20150727
  55. OLIVES [Concomitant]
     Active Substance: LIDOCAINE HYDROCHLORIDE
     Indication: ANALGESIC THERAPY
     Dosage: 720 MILLIGRAM
     Route: 051
     Dates: start: 20150812, end: 20150815
  56. MORPHINE HYDROCHLORIDE TRIHYDRATE [Concomitant]
     Active Substance: MORPHINE HYDROCHLORIDE
     Dosage: 120 MILLIGRAM
     Route: 029
     Dates: start: 20150903, end: 20150919
  57. ABSTRAL [Concomitant]
     Active Substance: FENTANYL CITRATE
     Indication: ANALGESIC THERAPY
     Dosage: 200 UG P.R.N
     Route: 048
     Dates: start: 20150618
  58. LYRICA [Concomitant]
     Active Substance: PREGABALIN
     Indication: ANALGESIC THERAPY
     Dosage: 300 MILLIGRAM
     Route: 048
     Dates: start: 20140402, end: 20150710
  59. HEPARIN [Concomitant]
     Active Substance: HEPARIN SODIUM
     Indication: PRODUCT USED FOR UNKNOWN INDICATION
     Dosage: 1000 IU
     Route: 051
     Dates: end: 20150626
  60. OXIFAST [Concomitant]
     Active Substance: OXYCODONE
     Dosage: 720 MILLIGRAM
     Route: 051
     Dates: start: 20150718, end: 20150806
  61. TAKEPRON [Concomitant]
     Active Substance: LANSOPRAZOLE
     Indication: PRODUCT USED FOR UNKNOWN INDICATION
     Dosage: 60 MILLIGRAM
     Route: 051
     Dates: start: 20150711, end: 20150713
  62. DROLEPTAN [Concomitant]
     Active Substance: DROPERIDOL
     Indication: PRODUCT USED FOR UNKNOWN INDICATION
     Dosage: 3.75 MILLIGRAM
     Route: 008
     Dates: start: 20150813, end: 20150813
  63. MORPHINE HYDROCHLORIDE TRIHYDRATE [Concomitant]
     Active Substance: MORPHINE HYDROCHLORIDE
     Dosage: 180 MILLIGRAM
     Route: 029
     Dates: start: 20150919, end: 20150928
  64. MARCAIN [Concomitant]
     Active Substance: BUPIVACAINE HYDROCHLORIDE
     Indication: ANALGESIC THERAPY
     Dosage: 1.8 MILLIGRAM
     Route: 029
     Dates: start: 20150819, end: 20151006

REACTIONS (2)
  - Somnolence [Unknown]
  - Rectal cancer [Fatal]

NARRATIVE: CASE EVENT DATE: 20151206
